FAERS Safety Report 4351477-1 (Version None)
Quarter: 2004Q2

REPORT INFORMATION
  Report Type: 
  Country: None (occurrence: None)
  Receive Date: 20040430
  Receipt Date: 20040430
  Transmission Date: 20050107
  Serious: No
  Sender: FDA-Public Use
  Company Number: None

PATIENT
  Age: 48 Year
  Sex: Female
  Weight: 51.2565 kg

DRUGS (2)
  1. SYNTHROID [Suspect]
     Indication: CARCINOMA
     Dosage: DAILY ORAL
     Route: 048
     Dates: start: 19910122, end: 20040429
  2. SYNTHROID [Suspect]
     Indication: THYROIDECTOMY
     Dosage: DAILY ORAL
     Route: 048
     Dates: start: 19910122, end: 20040429

REACTIONS (2)
  - DRUG HYPERSENSITIVITY [None]
  - FOOD ALLERGY [None]
